FAERS Safety Report 20510995 (Version 1)
Quarter: 2022Q1

REPORT INFORMATION
  Report Type: Spontaneous
  Country: US (occurrence: None)
  Receive Date: 20220223
  Receipt Date: 20220223
  Transmission Date: 20220423
  Serious: Yes (Hospitalization)
  Sender: FDA-Public Use
  Company Number: None

PATIENT
  Sex: Female

DRUGS (1)
  1. HUMIRA [Suspect]
     Active Substance: ADALIMUMAB
     Indication: Rheumatoid arthritis
     Dosage: OTHER QUANTITY : 40 MG/0.4ML;? ?INJECT 1 PEN ( 40 MG) UNDER THE SKIN (SUBCUTANEOUS  INJECTION) EVERY
     Route: 058
     Dates: start: 20210812

REACTIONS (1)
  - Intentional dose omission [None]
